FAERS Safety Report 12640459 (Version 1)
Quarter: 2016Q3

REPORT INFORMATION
  Report Type: Spontaneous
  Country: AU (occurrence: AU)
  Receive Date: 20160810
  Receipt Date: 20160810
  Transmission Date: 20161109
  Serious: Yes (Disabling)
  Sender: FDA-Public Use
  Company Number: AU-PFIZER INC-2016347169

PATIENT
  Age: 50 Year
  Sex: Female
  Weight: 110 kg

DRUGS (3)
  1. LYRICA [Suspect]
     Active Substance: PREGABALIN
     Indication: NEURALGIA
     Dosage: 25 MG, 2X/DAY
     Route: 048
     Dates: start: 20160710, end: 20160713
  2. ENDONE [Concomitant]
     Active Substance: OXYCODONE HYDROCHLORIDE
     Indication: PAIN
     Dosage: 5 MG, 1X/DAY
     Route: 048
  3. AVAPRO [Concomitant]
     Active Substance: IRBESARTAN
     Indication: HYPERTENSION
     Dosage: 150 MG, 1X/DAY
     Route: 048

REACTIONS (3)
  - Irritability [Unknown]
  - Aggression [Recovered/Resolved]
  - Anger [Recovered/Resolved]

NARRATIVE: CASE EVENT DATE: 20160713
